FAERS Safety Report 12890503 (Version 1)
Quarter: 2016Q4

REPORT INFORMATION
  Report Type: Spontaneous
  Country: GB (occurrence: GB)
  Receive Date: 20161027
  Receipt Date: 20161027
  Transmission Date: 20170207
  Serious: Yes (Hospitalization)
  Sender: FDA-Public Use
  Company Number: GB-MYLANLABS-2016M1045758

PATIENT

DRUGS (20)
  1. SIMVASTATIN. [Suspect]
     Active Substance: SIMVASTATIN
     Dosage: 20 MG, QD (AT NIGHT)
     Route: 048
  2. ALFACALCIDOL [Concomitant]
     Active Substance: ALFACALCIDOL
     Dosage: 500 NG, QD
     Route: 048
  3. ALLOPURINOL. [Concomitant]
     Active Substance: ALLOPURINOL
     Dosage: 50 MG, QD
     Route: 048
  4. AMOXICILLIN. [Suspect]
     Active Substance: AMOXICILLIN
     Indication: LOWER RESPIRATORY TRACT INFECTION
     Route: 048
     Dates: start: 20160920, end: 20160922
  5. NICORANDIL [Concomitant]
     Active Substance: NICORANDIL
     Dosage: 10 MG, BID
     Route: 048
  6. DOXAZOSIN [Concomitant]
     Active Substance: DOXAZOSIN\DOXAZOSIN MESYLATE
     Dosage: 3 MG, QD (AT NIGHT)
     Route: 048
  7. XYLOCAINE                          /00033402/ [Concomitant]
     Indication: LOCAL ANAESTHESIA
     Dosage: 2 %, UNK
  8. ASPIRIN                            /00346701/ [Suspect]
     Active Substance: ASCORBIC ACID\ASPIRIN
     Route: 048
     Dates: end: 20160922
  9. FUROSEMIDE. [Suspect]
     Active Substance: FUROSEMIDE
     Dosage: 40 MG, QD (IN THE MORNING)
     Route: 048
     Dates: start: 20160724
  10. LIGNOSPAN                          /01372201/ [Concomitant]
     Indication: LOCAL ANAESTHESIA
     Dosage: 2 %, UNK
  11. DICLOFENAC [Concomitant]
     Active Substance: DICLOFENAC
     Dosage: 1 DF, UNK (APPLY 3-4 TIMES DAILY)
     Route: 061
  12. INSULIN PORK [Concomitant]
     Active Substance: INSULIN PORK\INSULIN PURIFIED PORK
     Dosage: 69 UNITS AT 11AM AND 15 UNITS AT 9PM. 100UNITS/ML
     Route: 058
  13. LERCANIDIPINE [Concomitant]
     Active Substance: LERCANIDIPINE
     Dosage: 10 MG, QD
     Route: 048
  14. CONOTRANE                          /01805801/ [Concomitant]
     Dosage: APPLY TO AFFECTED AREA REGULARLY
     Route: 061
  15. PARACETAMOL [Concomitant]
     Active Substance: ACETAMINOPHEN
     Dosage: 500MG-1G EVERY 4-6 HOURS UP TO FOUR TIMES A DAY
     Route: 048
  16. URSODEOXYCHOLIC ACID [Concomitant]
     Active Substance: URSODIOL
     Dosage: 250 MG, TID
     Route: 048
  17. PREGABALIN. [Concomitant]
     Active Substance: PREGABALIN
     Dosage: 75 MG, BID
     Route: 048
  18. PROXYMETACAINE [Concomitant]
     Indication: LOCAL ANAESTHESIA
     Dosage: 0.5 %, UNK
     Route: 047
  19. ENALAPRIL [Concomitant]
     Active Substance: ENALAPRIL
     Dosage: 20 MG, BID
     Route: 048
  20. SODIUM BICARBONATE. [Concomitant]
     Active Substance: SODIUM BICARBONATE
     Dosage: 500 MG, BID
     Route: 048

REACTIONS (4)
  - Immune thrombocytopenic purpura [Recovering/Resolving]
  - Contusion [Unknown]
  - Procedural haemorrhage [Recovered/Resolved]
  - Anaemia [Unknown]

NARRATIVE: CASE EVENT DATE: 20160922
